FAERS Safety Report 8557166-1 (Version None)
Quarter: 2012Q3

REPORT INFORMATION
  Report Type: 
  Country: None (occurrence: None)
  Receive Date: 20120801
  Receipt Date: 20120727
  Transmission Date: 20120928
  Serious: Yes (Disabling)
  Sender: FDA-Public Use
  Company Number: GB-PFIZER INC-2012182201

PATIENT
  Age: 52 Year
  Sex: Female

DRUGS (3)
  1. EXEMESTANE [Suspect]
     Indication: BREAST CANCER
     Dosage: 25 MG, 1X/DAY
     Route: 048
     Dates: start: 20110513, end: 20120401
  2. ADCAL-D3 [Concomitant]
  3. OMEPRAZOLE [Concomitant]

REACTIONS (7)
  - CONSTIPATION [None]
  - CONJUNCTIVITIS [None]
  - FATIGUE [None]
  - ARTHRALGIA [None]
  - CARPAL TUNNEL SYNDROME [None]
  - EYELID OEDEMA [None]
  - NEUROPATHY PERIPHERAL [None]
